FAERS Safety Report 7130930-1 (Version None)
Quarter: 2010Q4

REPORT INFORMATION
  Report Type: 
  Country: None (occurrence: None)
  Receive Date: 20101201
  Receipt Date: 20101118
  Transmission Date: 20110411
  Serious: Yes (Congenital Anomaly)
  Sender: FDA-Public Use
  Company Number: A0681438A

PATIENT
  Sex: Female

DRUGS (10)
  1. PAXIL [Suspect]
     Indication: DEPRESSION
     Dosage: 20MG PER DAY
     Dates: start: 20050601, end: 20051201
  2. PAROXETINE [Suspect]
     Indication: DEPRESSION
     Dosage: 20MG PER DAY
     Dates: start: 20050421, end: 20060601
  3. PAXIL CR [Suspect]
     Indication: DEPRESSION
     Dosage: 25MG IN THE MORNING
  4. PRENATAL VITAMINS [Concomitant]
  5. VIRAMUNE [Concomitant]
  6. COMBIVIR [Concomitant]
  7. FLAGYL [Concomitant]
  8. FOLIC ACID [Concomitant]
  9. IRON [Concomitant]
  10. TRUVADA [Concomitant]

REACTIONS (17)
  - ATRIAL SEPTAL DEFECT [None]
  - BRADYCARDIA NEONATAL [None]
  - CAESAREAN SECTION [None]
  - CARDIAC MURMUR [None]
  - CONGENITAL FLOPPY INFANT [None]
  - CYANOSIS NEONATAL [None]
  - DRUG EXPOSURE DURING PREGNANCY [None]
  - HEART DISEASE CONGENITAL [None]
  - INFANTILE APNOEIC ATTACK [None]
  - MASS [None]
  - MATERNAL DRUGS AFFECTING FOETUS [None]
  - MULTIPLE CONGENITAL ABNORMALITIES [None]
  - NEONATAL RESPIRATORY DISTRESS SYNDROME [None]
  - PLACENTAL TRANSFUSION SYNDROME [None]
  - PREMATURE BABY [None]
  - PREMATURE RUPTURE OF MEMBRANES [None]
  - SEPSIS [None]
